FAERS Safety Report 22633959 (Version 1)
Quarter: 2023Q2

REPORT INFORMATION
  Report Type: Spontaneous
  Country: JP (occurrence: JP)
  Receive Date: 20230623
  Receipt Date: 20230623
  Transmission Date: 20230722
  Serious: Yes (Other)
  Sender: FDA-Public Use
  Company Number: JP-shionogi-202306531_EXJ_P_1

PATIENT
  Sex: Female

DRUGS (7)
  1. CYCLOPHOSPHAMIDE [Suspect]
     Active Substance: CYCLOPHOSPHAMIDE
     Indication: Collagen disorder
     Dosage: START DATE: SEP2006, DOSAGE FORM: INJECTION
     Route: 041
  2. CYCLOPHOSPHAMIDE [Suspect]
     Active Substance: CYCLOPHOSPHAMIDE
     Dosage: START DATE: OCT2006, DOSAGE FORM: INJECTION
     Route: 041
  3. CYCLOPHOSPHAMIDE [Suspect]
     Active Substance: CYCLOPHOSPHAMIDE
     Dosage: START DATE: JUL2007, DOSAGE FORM: INJECTION
     Route: 041
  4. CYCLOPHOSPHAMIDE [Suspect]
     Active Substance: CYCLOPHOSPHAMIDE
     Dosage: START DATE: 2008, DOSAGE FORM: INJECTION
     Route: 041
  5. CYCLOPHOSPHAMIDE [Suspect]
     Active Substance: CYCLOPHOSPHAMIDE
     Dosage: START DATE: 2009, DOSAGE FORM: INJECTION, DR 4 OR 6 TIMES
     Route: 041
  6. CYCLOPHOSPHAMIDE [Suspect]
     Active Substance: CYCLOPHOSPHAMIDE
     Dosage: START DATE: 2010, DOSAGE FORM: INJECTION, DR 12 TIMES
     Route: 041
  7. ISOTONIC SODIUM CHLORIDE SOLUTION [Concomitant]
     Active Substance: SODIUM CHLORIDE
     Dosage: UNTIL LATE AT NIGHT
     Route: 041

REACTIONS (5)
  - Nephrotic syndrome [Unknown]
  - Oedema [Unknown]
  - Renal impairment [Unknown]
  - Lung opacity [Unknown]
  - Nausea [Unknown]
